FAERS Safety Report 8496232-6 (Version None)
Quarter: 2012Q3

REPORT INFORMATION
  Report Type: 
  Country: None (occurrence: None)
  Receive Date: 20120709
  Receipt Date: 20120704
  Transmission Date: 20120928
  Serious: Yes (Hospitalization)
  Sender: FDA-Public Use
  Company Number: PE-PFIZER INC-2012161587

PATIENT
  Age: 60 Year
  Sex: Female

DRUGS (1)
  1. ACCUPRIL [Suspect]
     Dosage: 20 MG, 1X/DAY
     Route: 048

REACTIONS (2)
  - GASTROINTESTINAL DISORDER [None]
  - GALLBLADDER DISORDER [None]
